FAERS Safety Report 14517338 (Version 1)
Quarter: 2018Q1

REPORT INFORMATION
  Report Type: Report from Study
  Country: US (occurrence: US)
  Receive Date: 20180212
  Receipt Date: 20180212
  Transmission Date: 20180509
  Serious: No
  Sender: FDA-Public Use
  Company Number: US-PUMA BIOTECHNOLOGY, LTD.-2018US000361

PATIENT

DRUGS (1)
  1. NERLYNX [Suspect]
     Active Substance: NERATINIB
     Indication: BREAST CANCER
     Dosage: 240 MG, DAILY
     Route: 048
     Dates: start: 20180101

REACTIONS (5)
  - Gastrooesophageal reflux disease [Unknown]
  - Fatigue [Unknown]
  - Constipation [Unknown]
  - Nausea [Unknown]
  - Arthralgia [Unknown]
